FAERS Safety Report 18136668 (Version 1)
Quarter: 2020Q3

REPORT INFORMATION
  Report Type: Spontaneous
  Country: US (occurrence: US)
  Receive Date: 20200811
  Receipt Date: 20200811
  Transmission Date: 20201103
  Serious: Yes (Hospitalization)
  Sender: FDA-Public Use
  Company Number: US-MYLANLABS-2020M1070643

PATIENT
  Age: 59 Year
  Sex: Female

DRUGS (5)
  1. LIDOCAINE. [Concomitant]
     Active Substance: LIDOCAINE
     Indication: ANAESTHESIA
     Dosage: UNK
     Route: 065
  2. RECOTHROM [Concomitant]
     Active Substance: THROMBIN ALFA
     Indication: VASCULAR PSEUDOANEURYSM
     Dosage: RECONSTITUTED TO 1000 UNITS/1 ML OF SOLUTION
  3. CLOPIDOGREL [Suspect]
     Active Substance: CLOPIDOGREL BISULFATE
     Indication: PROPHYLAXIS
     Dosage: UNK
     Route: 065
  4. HEPARIN [Concomitant]
     Active Substance: HEPARIN SODIUM
     Indication: PROPHYLAXIS
     Dosage: UNK
     Route: 065
  5. APIXABAN [Suspect]
     Active Substance: APIXABAN
     Indication: PROPHYLAXIS
     Dosage: UNK
     Route: 065

REACTIONS (2)
  - Arterial stenosis [Unknown]
  - Vascular pseudoaneurysm [Recovered/Resolved]
